FAERS Safety Report 14484347 (Version 1)
Quarter: 2018Q1

REPORT INFORMATION
  Report Type: Spontaneous
  Country: US (occurrence: US)
  Receive Date: 20180202
  Receipt Date: 20180202
  Transmission Date: 20180509
  Serious: Yes (Other)
  Sender: FDA-Public Use
  Company Number: None

PATIENT
  Age: 39 Year
  Sex: Female
  Weight: 42.3 kg

DRUGS (1)
  1. OCREVUS [Suspect]
     Active Substance: OCRELIZUMAB
     Indication: MULTIPLE SCLEROSIS
     Dosage: INTRAVENOUS; Q 2 WEEKS X 2 DOSE?
     Route: 042
     Dates: start: 20180124, end: 20180124

REACTIONS (4)
  - Dizziness [None]
  - Heart rate decreased [None]
  - Blood pressure decreased [None]
  - Confusional state [None]

NARRATIVE: CASE EVENT DATE: 20180126
